FAERS Safety Report 9387524 (Version 1)
Quarter: 2013Q3

REPORT INFORMATION
  Report Type: Spontaneous
  Country: US (occurrence: US)
  Receive Date: 20130708
  Receipt Date: 20130708
  Transmission Date: 20140515
  Serious: Yes (Other)
  Sender: FDA-Public Use
  Company Number: US-PFIZER INC-2013198332

PATIENT
  Sex: Female

DRUGS (2)
  1. LYRICA [Suspect]
     Dosage: UNK
     Dates: start: 2013
  2. LIDOCAINE HCL [Interacting]
     Indication: HYPOAESTHESIA ORAL
     Dosage: UNK
     Dates: start: 2013

REACTIONS (3)
  - Tooth disorder [Unknown]
  - Drug interaction [Unknown]
  - Drug ineffective [Unknown]
